FAERS Safety Report 20020230 (Version 1)
Quarter: 2021Q4

REPORT INFORMATION
  Report Type: Spontaneous
  Country: CA (occurrence: CA)
  Receive Date: 20211101
  Receipt Date: 20211101
  Transmission Date: 20220304
  Serious: Yes (Other)
  Sender: FDA-Public Use
  Company Number: CA-PFIZER INC-202101401913

PATIENT

DRUGS (6)
  1. TOFACITINIB CITRATE [Suspect]
     Active Substance: TOFACITINIB CITRATE
     Indication: Rheumatoid arthritis
     Dosage: 10 MG, 2 EVERY 1 DAYS
     Route: 065
  2. TOFACITINIB CITRATE [Suspect]
     Active Substance: TOFACITINIB CITRATE
     Dosage: 5 MG,  2 EVERY 1 DAYS
     Route: 065
  3. METHOTREXATE SODIUM [Suspect]
     Active Substance: METHOTREXATE SODIUM
     Indication: Rheumatoid arthritis
     Dosage: 20 MG
     Route: 065
  4. HUMIRA [Suspect]
     Active Substance: ADALIMUMAB
     Indication: Rheumatoid arthritis
     Dosage: 40 MG, 1 EVERY 2 WEEKS
     Route: 058
  5. RINVOQ [Suspect]
     Active Substance: UPADACITINIB
     Indication: Rheumatoid arthritis
     Dosage: 30 MG
     Route: 048
  6. RINVOQ [Suspect]
     Active Substance: UPADACITINIB
     Dosage: 15 MG
     Route: 048

REACTIONS (10)
  - Drug ineffective [Unknown]
  - Cardiovascular disorder [Unknown]
  - Deep vein thrombosis [Unknown]
  - Embolism [Unknown]
  - Herpes zoster [Unknown]
  - Herpes zoster meningitis [Unknown]
  - Infection [Unknown]
  - Opportunistic infection [Unknown]
  - Pulmonary embolism [Unknown]
  - Skin cancer [Unknown]
